FAERS Safety Report 21458453 (Version 1)
Quarter: 2022Q4

REPORT INFORMATION
  Report Type: Spontaneous
  Country: NP (occurrence: NP)
  Receive Date: 20221014
  Receipt Date: 20221014
  Transmission Date: 20230113
  Serious: Yes (Death, Other)
  Sender: FDA-Public Use
  Company Number: NP-PFIZER INC-PV202200080967

PATIENT
  Age: 55 Year
  Sex: Male

DRUGS (1)
  1. XALKORI [Suspect]
     Active Substance: CRIZOTINIB
     Indication: Non-small cell lung cancer
     Dosage: 2 X 250MG CAPSULES

REACTIONS (1)
  - Death [Fatal]

NARRATIVE: CASE EVENT DATE: 20221001
